FAERS Safety Report 20845643 (Version 1)
Quarter: 2022Q2

REPORT INFORMATION
  Report Type: Spontaneous
  Country: DE (occurrence: None)
  Receive Date: 20220518
  Receipt Date: 20220518
  Transmission Date: 20220720
  Serious: Yes (Other)
  Sender: FDA-Public Use
  Company Number: DE-ROCHE-3061090

PATIENT
  Age: 78 Year
  Sex: Female
  Weight: 69 kg

DRUGS (2)
  1. HERCEPTIN [Suspect]
     Active Substance: TRASTUZUMAB
     Indication: Metastatic squamous cell carcinoma
     Route: 042
  2. KEYTRUDA [Suspect]
     Active Substance: PEMBROLIZUMAB
     Indication: Metastatic squamous cell carcinoma
     Route: 042
     Dates: start: 202102

REACTIONS (5)
  - Infusion related reaction [Recovered/Resolved]
  - Off label use [Unknown]
  - Off label use [Unknown]
  - Feeling cold [Recovered/Resolved]
  - Chills [Recovered/Resolved]
